FAERS Safety Report 12985841 (Version 1)
Quarter: 2016Q4

REPORT INFORMATION
  Report Type: Spontaneous
  Country: FR (occurrence: FR)
  Receive Date: 20161130
  Receipt Date: 20161130
  Transmission Date: 20170207
  Serious: Yes (Hospitalization)
  Sender: FDA-Public Use
  Company Number: FR-009507513-1611FRA012777

PATIENT
  Age: 16 Year
  Sex: Female

DRUGS (12)
  1. VELBE [Interacting]
     Active Substance: VINBLASTINE SULFATE
     Indication: HODGKIN^S DISEASE
     Dosage: 9 MG, CYCLICAL
     Route: 041
     Dates: start: 20161011, end: 20161011
  2. DOXORUBICIN TEVA [Interacting]
     Active Substance: DOXORUBICIN
     Dosage: 62 MG, CYCLICAL
     Route: 041
     Dates: start: 20161031
  3. ONDANSETRON ACCORD [Suspect]
     Active Substance: ONDANSETRON
     Dosage: 25 MG, CYCLICAL  (6 DAYS +1 DAY+ 1 DAY)
     Route: 042
     Dates: start: 20161003, end: 20161011
  4. EMEND [Suspect]
     Active Substance: APREPITANT
     Indication: PROPHYLAXIS OF NAUSEA AND VOMITING
     Dosage: UNK
     Route: 048
     Dates: end: 20161018
  5. VINCRISTINE [Interacting]
     Active Substance: VINCRISTINE
     Dosage: 1.7 MG, CYCLICAL, (CYCLE 1 DAY 8)
     Route: 041
     Dates: start: 20161003, end: 20161003
  6. ONDANSETRON ACCORD [Suspect]
     Active Substance: ONDANSETRON
     Indication: PROPHYLAXIS OF NAUSEA AND VOMITING
     Dosage: 25 MG, CYCLE 1
     Route: 042
     Dates: start: 20160926, end: 20161001
  7. VINCRISTINE [Interacting]
     Active Substance: VINCRISTINE
     Indication: HODGKIN^S DISEASE
     Dosage: 2 MG, CYCLICAL, (CYCLE 1 DAY 1)
     Route: 041
     Dates: start: 20160926, end: 20160926
  8. VELBE [Interacting]
     Active Substance: VINBLASTINE SULFATE
     Dosage: 9 MG, CYCLICAL (CYCLE 1 DAY 15)
     Route: 041
     Dates: start: 20161031
  9. DOXORUBICIN TEVA [Interacting]
     Active Substance: DOXORUBICIN
     Indication: HODGKIN^S DISEASE
     Dosage: 62 MG, CYCLICAL (CYCLE 1 DAY 1 AND 15)
     Route: 041
     Dates: start: 20160926, end: 20161011
  10. ETOPOSIDE. [Suspect]
     Active Substance: ETOPOSIDE
     Indication: HODGKIN^S DISEASE
     Dosage: 195 MG, QD
     Route: 041
     Dates: start: 20160926, end: 20160930
  11. CORTANCYL [Suspect]
     Active Substance: PREDNISONE
     Dosage: UNK
     Route: 048
     Dates: start: 20160926, end: 20161011
  12. RIVOTRIL [Concomitant]
     Active Substance: CLONAZEPAM
     Indication: NEURALGIA
     Dosage: UNK
     Dates: end: 20161031

REACTIONS (5)
  - Neuralgia [Recovered/Resolved]
  - Aplasia [Recovered/Resolved]
  - Ileus [Recovered/Resolved]
  - Febrile bone marrow aplasia [Recovered/Resolved]
  - Ileus [Recovered/Resolved]

NARRATIVE: CASE EVENT DATE: 20160928
